FAERS Safety Report 13256212 (Version 2)
Quarter: 2017Q1

REPORT INFORMATION
  Report Type: Spontaneous
  Country: US (occurrence: US)
  Receive Date: 20170221
  Receipt Date: 20170227
  Transmission Date: 20170428
  Serious: Yes (Death, Hospitalization, Other)
  Sender: FDA-Public Use
  Company Number: US-009507513-1702USA006657

PATIENT
  Sex: Male

DRUGS (3)
  1. VALCYTE [Concomitant]
     Active Substance: VALGANCICLOVIR HYDROCHLORIDE
     Dosage: UNK
  2. TACROLIMUS. [Concomitant]
     Active Substance: TACROLIMUS
     Dosage: UNK
  3. NOXAFIL [Suspect]
     Active Substance: POSACONAZOLE
     Indication: PROPHYLAXIS
     Dosage: UNK
     Route: 048
     Dates: start: 20151029

REACTIONS (6)
  - Septic shock [Fatal]
  - Ascites [Unknown]
  - Respiratory failure [Fatal]
  - Leukaemia [Fatal]
  - Pneumonia [Fatal]
  - Renal impairment [Unknown]
